FAERS Safety Report 4959115-1 (Version None)
Quarter: 2006Q1

REPORT INFORMATION
  Report Type: 
  Country: None (occurrence: None)
  Receive Date: 20060330
  Receipt Date: 20060330
  Transmission Date: 20060701
  Serious: Yes (Hospitalization)
  Sender: FDA-Public Use
  Company Number: None

PATIENT
  Age: 36 Year
  Sex: Female
  Weight: 52.1637 kg

DRUGS (5)
  1. KETEK [Suspect]
     Indication: RHINITIS
     Dosage: 800 MG DAILY X5 DAYS (3 COURSES)
  2. KETEK [Suspect]
     Indication: SINUSITIS
     Dosage: 800 MG DAILY X5 DAYS (3 COURSES)
  3. SINGULAIR [Concomitant]
  4. LEVOTHYROXINE SODIUM [Concomitant]
  5. BCP [Concomitant]

REACTIONS (4)
  - ALANINE AMINOTRANSFERASE INCREASED [None]
  - ASPARTATE AMINOTRANSFERASE INCREASED [None]
  - BLOOD ALKALINE PHOSPHATASE INCREASED [None]
  - SYNCOPE [None]
